FAERS Safety Report 8059470-2 (Version None)
Quarter: 2012Q1

REPORT INFORMATION
  Report Type: 
  Country: None (occurrence: None)
  Receive Date: 20120120
  Receipt Date: 20120118
  Transmission Date: 20120608
  Serious: Yes (Other)
  Sender: FDA-Public Use
  Company Number: US-ROCHE-1031838

PATIENT
  Sex: Female
  Weight: 143.01 kg

DRUGS (1)
  1. XELODA [Suspect]
     Indication: BREAST CANCER METASTATIC
     Route: 048
     Dates: start: 20120111, end: 20120111

REACTIONS (1)
  - GRAND MAL CONVULSION [None]
